FAERS Safety Report 10171455 (Version 1)
Quarter: 2014Q2

REPORT INFORMATION
  Report Type: Spontaneous
  Country: IN (occurrence: None)
  Receive Date: 20140512
  Receipt Date: 20140512
  Transmission Date: 20141212
  Serious: Yes (Other)
  Sender: FDA-Public Use
  Company Number: AUR-APL-2014-05505

PATIENT
  Age: 36 Year
  Sex: Female

DRUGS (3)
  1. ZIDOVUDINE (ZIDOVUDINE) [Suspect]
     Indication: ANTIRETROVIRAL THERAPY
     Dates: start: 201001
  2. LAMIVUDINE (LAMIVUDINE) [Suspect]
     Indication: ANTIRETROVIRAL THERAPY
     Dates: start: 201001
  3. NEVIRAPINE (NEVIRAPINE) [Concomitant]

REACTIONS (8)
  - Anaemia [None]
  - Thrombocytopenia [None]
  - Tinnitus [None]
  - Fatigue [None]
  - Asthenia [None]
  - Dyspnoea exertional [None]
  - Bone marrow failure [None]
  - Aplasia pure red cell [None]
